FAERS Safety Report 4282456-0 (Version None)
Quarter: 2004Q1

REPORT INFORMATION
  Report Type: 
  Country: None (occurrence: None)
  Receive Date: 20040120
  Receipt Date: 20030924
  Transmission Date: 20041129
  Serious: No
  Sender: FDA-Public Use
  Company Number: 03P-163-0234930-00

PATIENT
  Age: 11 Month
  Sex: Male
  Weight: 10.8863 kg

DRUGS (3)
  1. OMNICEF [Suspect]
     Indication: EAR INFECTION
     Dosage: 156 MG, 1 IN 1 D, PER ORAL
     Route: 048
     Dates: start: 20030131
  2. IBUPROFEN [Suspect]
     Indication: EAR PAIN
  3. TRIOMINIC [Concomitant]

REACTIONS (1)
  - FAECES DISCOLOURED [None]
